FAERS Safety Report 24567644 (Version 2)
Quarter: 2024Q4

REPORT INFORMATION
  Report Type: Spontaneous
  Country: US (occurrence: US)
  Receive Date: 20241031
  Receipt Date: 20241210
  Transmission Date: 20250115
  Serious: No
  Sender: ASTELLAS
  Company Number: US-PFIZER INC-PV202400132972

PATIENT
  Age: 50 Year
  Sex: Female
  Weight: 47.619 kg

DRUGS (3)
  1. PADCEV [Suspect]
     Active Substance: ENFORTUMAB VEDOTIN\ENFORTUMAB VEDOTIN-EJFV
     Indication: Product used for unknown indication
     Dosage: UNK
     Route: 050
  2. TIVDAK [Suspect]
     Active Substance: TISOTUMAB VEDOTIN-TFTV
     Indication: Product used for unknown indication
     Dosage: 96 MG, EVERY 3 WEEKS
     Route: 042
  3. TIVDAK [Suspect]
     Active Substance: TISOTUMAB VEDOTIN-TFTV
     Dosage: 96 MG, EVERY 3 WEEKS
     Route: 042

REACTIONS (2)
  - Product dispensing error [Unknown]
  - Product substitution issue [Unknown]
